FAERS Safety Report 17276376 (Version 2)
Quarter: 2020Q1

REPORT INFORMATION
  Report Type: Report from Study
  Country: US (occurrence: US)
  Receive Date: 20200116
  Receipt Date: 20200127
  Transmission Date: 20200409
  Serious: Yes (Hospitalization)
  Sender: FDA-Public Use
  Company Number: US-GLOBAL BLOOD THERAPEUTICS INC-US-GBT-19-00257

PATIENT
  Age: 23 Year
  Sex: Female

DRUGS (13)
  1. IBUPROFEN. [Concomitant]
     Active Substance: IBUPROFEN
     Indication: SICKLE CELL DISEASE
     Route: 048
     Dates: start: 20190612
  2. COLACE [Concomitant]
     Active Substance: DOCUSATE SODIUM
     Indication: PROPHYLAXIS
     Route: 048
     Dates: start: 20190724
  3. VOXELOTOR. [Suspect]
     Active Substance: VOXELOTOR
     Indication: SICKLE CELL DISEASE
     Route: 048
     Dates: start: 20190926, end: 20191106
  4. VOXELOTOR. [Suspect]
     Active Substance: VOXELOTOR
     Route: 048
     Dates: start: 20191130
  5. HYDROXYUREA. [Concomitant]
     Active Substance: HYDROXYUREA
     Indication: SICKLE CELL DISEASE
     Route: 048
     Dates: start: 20190812
  6. OXYCODONE [Concomitant]
     Active Substance: OXYCODONE
     Indication: SICKLE CELL DISEASE
     Route: 048
     Dates: start: 20190724
  7. OXYCONTIN [Concomitant]
     Active Substance: OXYCODONE HYDROCHLORIDE
     Indication: BONE INFARCTION
     Route: 048
     Dates: start: 2019
  8. MORPHINE [Concomitant]
     Active Substance: MORPHINE
     Route: 042
     Dates: start: 20191009, end: 20191009
  9. FOLIC ACID. [Concomitant]
     Active Substance: FOLIC ACID
     Indication: SICKLE CELL DISEASE
     Route: 048
     Dates: start: 20190131
  10. MORPHINE [Concomitant]
     Active Substance: MORPHINE
     Indication: SICKLE CELL ANAEMIA WITH CRISIS
     Route: 042
     Dates: start: 20191009, end: 20191009
  11. TORADOL [Concomitant]
     Active Substance: KETOROLAC TROMETHAMINE
     Indication: SICKLE CELL ANAEMIA WITH CRISIS
     Route: 042
     Dates: start: 20191009, end: 20191009
  12. SENNA [Concomitant]
     Active Substance: SENNA LEAF\SENNOSIDES\SENNOSIDES A AND B
     Indication: PROPHYLAXIS
     Route: 048
     Dates: start: 20190313
  13. COMPAZINE [Concomitant]
     Active Substance: PROCHLORPERAZINE MALEATE
     Indication: PROPHYLAXIS
     Route: 048
     Dates: start: 20190724

REACTIONS (2)
  - Sickle cell anaemia with crisis [Recovered/Resolved]
  - Bone infarction [Not Recovered/Not Resolved]

NARRATIVE: CASE EVENT DATE: 20191107
